FAERS Safety Report 8153495-4 (Version None)
Quarter: 2012Q1

REPORT INFORMATION
  Report Type: 
  Country: None (occurrence: None)
  Receive Date: 20120103
  Receipt Date: 20111026
  Transmission Date: 20120608
  Serious: No
  Sender: FDA-Public Use
  Company Number: AE-2011-002714

PATIENT
  Sex: Female

DRUGS (1)
  1. INCIVEK [Suspect]

REACTIONS (1)
  - PLATELET COUNT DECREASED [None]
